FAERS Safety Report 4779616-9 (Version None)
Quarter: 2005Q3

REPORT INFORMATION
  Report Type: 
  Country: None (occurrence: None)
  Receive Date: 20050914
  Receipt Date: 20050706
  Transmission Date: 20060218
  Serious: Yes (Other)
  Sender: FDA-Public Use
  Company Number: 163-20785-05070091

PATIENT

DRUGS (3)
  1. THALOMID [Suspect]
     Indication: HEPATIC NEOPLASM MALIGNANT NON-RESECTABLE
     Dosage: SEE IMAGE
     Route: 048
     Dates: start: 20011019
  2. DOXORUBICIN HCL [Suspect]
     Indication: HEPATIC NEOPLASM MALIGNANT NON-RESECTABLE
     Dosage: 100 MG, INTRA-ATERIAL
     Route: 013
  3. AVITENE [Suspect]

REACTIONS (2)
  - ABDOMINAL PAIN [None]
  - FATIGUE [None]
